FAERS Safety Report 16916275 (Version 1)
Quarter: 2019Q4

REPORT INFORMATION
  Report Type: Spontaneous
  Country: FR (occurrence: FR)
  Receive Date: 20191014
  Receipt Date: 20191014
  Transmission Date: 20200122
  Serious: Yes (Other)
  Sender: FDA-Public Use
  Company Number: FR-JNJFOC-20191006691

PATIENT
  Age: 52 Year
  Sex: Male
  Weight: 87 kg

DRUGS (2)
  1. STELARA [Suspect]
     Active Substance: USTEKINUMAB
     Indication: PSORIASIS
     Route: 058
     Dates: start: 20150330
  2. LERCANIDIPINE [Concomitant]
     Active Substance: LERCANIDIPINE
     Route: 065

REACTIONS (4)
  - Haematuria [Not Recovered/Not Resolved]
  - IgA nephropathy [Not Recovered/Not Resolved]
  - Renal failure [Not Recovered/Not Resolved]
  - Proteinuria [Not Recovered/Not Resolved]

NARRATIVE: CASE EVENT DATE: 201908
